FAERS Safety Report 5413056-4 (Version None)
Quarter: 2007Q3

REPORT INFORMATION
  Report Type: 
  Country: None (occurrence: None)
  Receive Date: 20070713
  Receipt Date: 20070329
  Transmission Date: 20080115
  Serious: No
  Sender: FDA-Public Use
  Company Number: 2007SP000858

PATIENT
  Age: 34 Year
  Sex: Male
  Weight: 83.9154 kg

DRUGS (5)
  1. LUNESTA [Suspect]
     Indication: INSOMNIA
     Dosage: 2 MG; PRN; ORAL
     Route: 048
     Dates: start: 20050510
  2. ZYPREXA [Concomitant]
  3. LAMOTRIGINE [Concomitant]
  4. WELLBUTRIN SR [Concomitant]
  5. TUMS [Concomitant]

REACTIONS (1)
  - DYSGEUSIA [None]
